FAERS Safety Report 10014796 (Version 1)
Quarter: 2014Q1

REPORT INFORMATION
  Report Type: Spontaneous
  Country: US (occurrence: US)
  Receive Date: 20140317
  Receipt Date: 20140317
  Transmission Date: 20141002
  Serious: No
  Sender: FDA-Public Use
  Company Number: US-SHIRE-US201400493

PATIENT
  Sex: 0

DRUGS (2)
  1. VYVANSE [Suspect]
     Indication: ATTENTION DEFICIT/HYPERACTIVITY DISORDER
     Dosage: 30 MG, 1X/DAY:QD
     Route: 048
     Dates: start: 2009, end: 20140308
  2. PROZAC [Concomitant]
     Indication: DEPRESSION
     Dosage: 20 MG, 1X/DAY:QD
     Route: 048
     Dates: start: 2013

REACTIONS (3)
  - Migraine [Not Recovered/Not Resolved]
  - Mania [Not Recovered/Not Resolved]
  - Drug dose omission [Unknown]
